FAERS Safety Report 4774260-1 (Version None)
Quarter: 2005Q3

REPORT INFORMATION
  Report Type: 
  Country: None (occurrence: None)
  Receive Date: 20050914
  Receipt Date: 20050307
  Transmission Date: 20060218
  Serious: Yes (Hospitalization)
  Sender: FDA-Public Use
  Company Number: 163-20785-05030189

PATIENT
  Age: 69 Year
  Sex: Male
  Weight: 90.7194 kg

DRUGS (11)
  1. THALOMID [Suspect]
     Indication: MULTIPLE MYELOMA
     Dosage: 100 MG, QPM, ORAL;  50 MG, QPM, ORAL
     Route: 048
     Dates: start: 20041229, end: 20050101
  2. THALOMID [Suspect]
     Indication: MULTIPLE MYELOMA
     Dosage: 100 MG, QPM, ORAL;  50 MG, QPM, ORAL
     Route: 048
     Dates: start: 20050101, end: 20050101
  3. RESTORIL [Concomitant]
  4. DIFLUCAN [Concomitant]
  5. ALLOPURINOL [Concomitant]
  6. RENAGEL (SEVELAMER HYDROCHLORIDE) (TABLETS) [Concomitant]
  7. SEPTRA DS [Concomitant]
  8. DEXAMETHASONE [Concomitant]
  9. PROCRIT [Concomitant]
  10. ARANESP (DARBETPOETIN ALFA) [Concomitant]
  11. PROTONIX [Concomitant]

REACTIONS (7)
  - COUGH [None]
  - DECREASED APPETITE [None]
  - DISEASE PROGRESSION [None]
  - DIZZINESS [None]
  - DYSPHONIA [None]
  - DYSPNOEA [None]
  - NAUSEA [None]
